FAERS Safety Report 9865696 (Version 1)
Quarter: 2014Q1

REPORT INFORMATION
  Report Type: Spontaneous
  Country: US (occurrence: US)
  Receive Date: 20140203
  Receipt Date: 20140203
  Transmission Date: 20141002
  Serious: No
  Sender: FDA-Public Use
  Company Number: US-ALLERGAN-1306520US

PATIENT
  Age: 61 Year
  Sex: Female

DRUGS (3)
  1. RESTASIS [Suspect]
     Indication: DRY EYE
     Dosage: 2 GTT, BID
     Route: 047
     Dates: start: 20130330
  2. LOTEMAX [Concomitant]
     Indication: DRY EYE
     Dosage: UNK
     Dates: start: 201303, end: 20130430
  3. ARTIFICIAL TEARS [Concomitant]
     Indication: PRODUCT USED FOR UNKNOWN INDICATION
     Dosage: 2 GTT, PRN
     Route: 047

REACTIONS (4)
  - Ocular vascular disorder [Unknown]
  - Visual impairment [Unknown]
  - Vision blurred [Unknown]
  - Ocular hyperaemia [Unknown]
